FAERS Safety Report 7461237-0 (Version None)
Quarter: 2011Q2

REPORT INFORMATION
  Report Type: 
  Country: None (occurrence: None)
  Receive Date: 20110506
  Receipt Date: 20110413
  Transmission Date: 20111010
  Serious: Yes (Other)
  Sender: FDA-Public Use
  Company Number: NL-AMGEN-NLDSP2011022597

PATIENT
  Age: 56 Year
  Sex: Female

DRUGS (5)
  1. PREDNISONE [Concomitant]
     Dosage: UNK
  2. HYDROCHLOROTHIAZIDE [Concomitant]
     Dosage: UNK
  3. MTX                                /00113801/ [Concomitant]
     Dosage: UNK
  4. ENBREL [Suspect]
     Indication: RHEUMATOID ARTHRITIS
     Dosage: 50 MG, WEEKLY
     Dates: start: 20110310
  5. PARACETAMOL [Concomitant]
     Dosage: UNK

REACTIONS (3)
  - PAIN [None]
  - METASTASIS [None]
  - DYSPNOEA [None]
